FAERS Safety Report 5456908-1 (Version None)
Quarter: 2007Q3

REPORT INFORMATION
  Report Type: 
  Country: None (occurrence: None)
  Receive Date: 20070918
  Receipt Date: 20070906
  Transmission Date: 20080115
  Serious: Yes (Life-Threatening, Hospitalization)
  Sender: FDA-Public Use
  Company Number: DK-PFIZER INC-2007062548

PATIENT
  Sex: Male

DRUGS (4)
  1. SUTENT [Suspect]
     Indication: COLORECTAL CANCER
     Route: 048
     Dates: start: 20070614, end: 20070706
  2. SUTENT [Suspect]
     Indication: COLORECTAL CANCER METASTATIC
  3. IRINOTECAN HCL [Concomitant]
     Route: 042
     Dates: start: 20070614, end: 20070627
  4. CETUXIMAB [Concomitant]
     Route: 042
     Dates: start: 20070614, end: 20070627

REACTIONS (17)
  - ABDOMINAL PAIN [None]
  - BLOOD BILIRUBIN INCREASED [None]
  - BLOOD CREATININE INCREASED [None]
  - ERYTHEMA [None]
  - FATIGUE [None]
  - HEPATIC ENZYME INCREASED [None]
  - HEPATIC FAILURE [None]
  - MALAISE [None]
  - MULTI-ORGAN FAILURE [None]
  - NAUSEA [None]
  - OCULAR ICTERUS [None]
  - OLIGURIA [None]
  - PLATELET COUNT INCREASED [None]
  - RENAL FAILURE [None]
  - STRANGURY [None]
  - VOMITING [None]
  - YELLOW SKIN [None]
